FAERS Safety Report 13381681 (Version 2)
Quarter: 2017Q1

REPORT INFORMATION
  Report Type: Spontaneous
  Country: US (occurrence: US)
  Receive Date: 20170329
  Receipt Date: 20170330
  Transmission Date: 20170429
  Serious: Yes (Other)
  Sender: FDA-Public Use
  Company Number: US-TEVA-752797USA

PATIENT
  Age: 40 Year
  Sex: Female
  Weight: 62.65 kg

DRUGS (1)
  1. PROAIR HFA [Suspect]
     Active Substance: ALBUTEROL SULFATE
     Indication: BRONCHITIS VIRAL
     Dosage: 2 PUFFS EVERY 4 HOURS
     Route: 065
     Dates: start: 20170314, end: 20170315

REACTIONS (18)
  - Decreased appetite [Recovering/Resolving]
  - Dyspnoea [Recovering/Resolving]
  - Dizziness [Recovering/Resolving]
  - Tremor [Recovering/Resolving]
  - Muscle twitching [Recovering/Resolving]
  - Oropharyngeal pain [Recovering/Resolving]
  - Dysgeusia [Recovering/Resolving]
  - Dizziness [Unknown]
  - Exposure during breast feeding [Unknown]
  - Confusional state [Recovering/Resolving]
  - Feeling jittery [Recovering/Resolving]
  - Malaise [Recovering/Resolving]
  - Dry mouth [Recovering/Resolving]
  - Chest discomfort [Unknown]
  - Heart rate increased [Recovering/Resolving]
  - Palpitations [Recovering/Resolving]
  - Hypersensitivity [Unknown]
  - Disorientation [Recovering/Resolving]

NARRATIVE: CASE EVENT DATE: 20170315
